FAERS Safety Report 4737603-0 (Version None)
Quarter: 2005Q3

REPORT INFORMATION
  Report Type: 
  Country: None (occurrence: None)
  Receive Date: 20050809
  Receipt Date: 20050520
  Transmission Date: 20060218
  Serious: No
  Sender: FDA-Public Use
  Company Number: US-GLAXOSMITHKLINE-A0559494A

PATIENT
  Age: 69 Year
  Sex: Female

DRUGS (6)
  1. COMMIT [Suspect]
  2. XANAX [Concomitant]
  3. ZOLOFT [Concomitant]
  4. NEXIUM [Concomitant]
  5. NEBULIZER [Concomitant]
  6. INHALERS [Concomitant]

REACTIONS (2)
  - IRRITABILITY [None]
  - NICOTINE DEPENDENCE [None]
